FAERS Safety Report 21399742 (Version 1)
Quarter: 2022Q4

REPORT INFORMATION
  Report Type: Spontaneous
  Country: FR (occurrence: FR)
  Receive Date: 20221001
  Receipt Date: 20221001
  Transmission Date: 20230113
  Serious: Yes (Life-Threatening)
  Sender: FDA-Public Use
  Company Number: None

PATIENT
  Age: 65 Year
  Sex: Female
  Weight: 63 kg

DRUGS (3)
  1. DIAZEPAM [Interacting]
     Active Substance: DIAZEPAM
     Indication: Anxiety
     Dosage: UNIT DOSE:7 MG,FREQUENCY TIME -1 DAYS, DURATION -1 DAY
  2. ALPRAZOLAM [Interacting]
     Active Substance: ALPRAZOLAM
     Indication: Anxiety
     Dosage: UNIT DOSE:0.25 MG,FREQUENCY TIME -1 DAYS, DURATION -9 DAY,THERAPY END DATE -NASK
     Dates: start: 20220813
  3. OXAZEPAM [Interacting]
     Active Substance: OXAZEPAM
     Indication: Anxiety
     Dosage: UNIT DOSE:25 MG,FREQUENCY TIME -1 DAYS, DURATION -1 DAY

REACTIONS (2)
  - Respiratory acidosis [Recovered/Resolved]
  - Drug interaction [Recovered/Resolved]

NARRATIVE: CASE EVENT DATE: 20220823
